FAERS Safety Report 20672868 (Version 1)
Quarter: 2022Q2

REPORT INFORMATION
  Report Type: Spontaneous
  Country: US (occurrence: US)
  Receive Date: 20220405
  Receipt Date: 20220405
  Transmission Date: 20220721
  Serious: Yes (Hospitalization)
  Sender: FDA-Public Use
  Company Number: US-STRIDES ARCOLAB LIMITED-2022SP003376

PATIENT
  Age: 17 Year
  Sex: Female

DRUGS (7)
  1. FLUOXETINE [Suspect]
     Active Substance: FLUOXETINE HYDROCHLORIDE
     Indication: Product used for unknown indication
     Dosage: UNK
     Route: 065
  2. OLANZAPINE [Suspect]
     Active Substance: OLANZAPINE
     Indication: Product used for unknown indication
     Dosage: UNK
     Route: 065
  3. DIAZEPAM [Suspect]
     Active Substance: DIAZEPAM
     Indication: Product used for unknown indication
     Dosage: UNK
     Route: 065
  4. MIDOMAFETAMINE [Suspect]
     Active Substance: MIDOMAFETAMINE
     Indication: Product used for unknown indication
     Dosage: UNK
     Route: 065
  5. ARIPIPRAZOLE [Suspect]
     Active Substance: ARIPIPRAZOLE
     Indication: Product used for unknown indication
     Dosage: UNK
     Route: 065
  6. AMPHETAMINE [Suspect]
     Active Substance: AMPHETAMINE
     Indication: Product used for unknown indication
     Dosage: UNK
     Route: 065
  7. CANNABIS SATIVA SUBSP. INDICA TOP [Suspect]
     Active Substance: CANNABIS SATIVA SUBSP. INDICA TOP
     Indication: Product used for unknown indication
     Dosage: UNK
     Route: 065

REACTIONS (4)
  - Serotonin syndrome [Unknown]
  - Somnolence [Unknown]
  - Tachycardia [Unknown]
  - Miosis [Unknown]
